FAERS Safety Report 7457211-0 (Version None)
Quarter: 2011Q2

REPORT INFORMATION
  Report Type: 
  Country: None (occurrence: None)
  Receive Date: 20110504
  Receipt Date: 20110502
  Transmission Date: 20111010
  Serious: No
  Sender: FDA-Public Use
  Company Number: US-PFIZER INC-2011053725

PATIENT
  Sex: Male

DRUGS (10)
  1. FOLIC ACID [Concomitant]
     Dosage: DAILY
  2. CARVEDILOL [Concomitant]
     Dosage: DAILY
  3. DIOVANE [Concomitant]
     Dosage: DAILY
  4. RANEXA [Concomitant]
     Dosage: DAILY
  5. LIPITOR [Concomitant]
     Dosage: TWO TIMES A WEEK
  6. ACETYLSALICYLIC ACID [Concomitant]
     Dosage: DAILY
  7. AMIODARONE [Concomitant]
     Dosage: DAILY
  8. NAPROXEN [Concomitant]
     Dosage: AS NEEDED
  9. ADVIL CONGESTION RELIEF [Suspect]
     Dosage: UNK
  10. ALLOPURINOL [Concomitant]
     Dosage: DAILY

REACTIONS (3)
  - HYPERSENSITIVITY [None]
  - DRUG INEFFECTIVE [None]
  - SINUS CONGESTION [None]
